FAERS Safety Report 9031766 (Version 1)
Quarter: 2013Q1

REPORT INFORMATION
  Report Type: Spontaneous
  Country: GB (occurrence: GB)
  Receive Date: 20130124
  Receipt Date: 20130124
  Transmission Date: 20140127
  Serious: Yes (Other)
  Sender: FDA-Public Use
  Company Number: GB-PFIZER INC-2013027885

PATIENT
  Age: 6 Year
  Sex: Male

DRUGS (8)
  1. PHENYTOIN [Suspect]
     Indication: EPILEPSY
     Dosage: UNK
     Route: 042
     Dates: start: 20121226, end: 20121226
  2. DIPRIVAN [Suspect]
     Indication: SEDATION
     Dosage: 1 %, UNK
     Route: 042
     Dates: start: 20121226, end: 20121226
  3. SUXAMETHONIUM [Suspect]
     Indication: PARALYSIS
     Dosage: UNK
     Route: 042
     Dates: start: 20121226, end: 20121226
  4. ATRACURIUM [Suspect]
     Indication: PARALYSIS
     Dosage: UNK
     Route: 042
     Dates: start: 20121226, end: 20121226
  5. CLOBAZAM [Concomitant]
     Indication: EPILEPSY
     Dosage: 5 MG, 2X/DAY
     Dates: start: 2011
  6. LEVETIRACETAM [Concomitant]
     Indication: EPILEPSY
     Dosage: 550 MG, 2X/DAY
  7. TOPIRAMATE [Concomitant]
     Indication: EPILEPSY
     Dosage: 50 MG, UNK
     Route: 050
     Dates: start: 201109
  8. TOPIRAMATE [Concomitant]
     Dosage: 62.5 MG, UNK

REACTIONS (2)
  - Blood creatine phosphokinase increased [Unknown]
  - Thrombocytopenia [Unknown]
